FAERS Safety Report 23332187 (Version 10)
Quarter: 2025Q2

REPORT INFORMATION
  Report Type: Spontaneous
  Country: US (occurrence: US)
  Receive Date: 20231222
  Receipt Date: 20250523
  Transmission Date: 20250717
  Serious: Yes (Other)
  Sender: PFIZER
  Company Number: US-PFIZER INC-202300444580

PATIENT
  Age: 65 Year
  Sex: Female
  Weight: 82.54 kg

DRUGS (9)
  1. XELJANZ XR [Suspect]
     Active Substance: TOFACITINIB CITRATE
     Indication: Psoriatic arthropathy
  2. XELJANZ XR [Suspect]
     Active Substance: TOFACITINIB CITRATE
     Indication: Ankylosing spondylitis
     Dosage: 20 MG, 1X/DAY
     Dates: start: 202306
  3. XELJANZ XR [Suspect]
     Active Substance: TOFACITINIB CITRATE
     Dosage: 11 MG, 1X/DAY
  4. TALTZ [Suspect]
     Active Substance: IXEKIZUMAB
  5. METHOTREXATE [Concomitant]
     Active Substance: METHOTREXATE
  6. OTEZLA [Concomitant]
     Active Substance: APREMILAST
  7. OLMESARTAN [Concomitant]
     Active Substance: OLMESARTAN
  8. AMLODIPINE [Concomitant]
     Active Substance: AMLODIPINE BESYLATE
  9. ATORVASTATIN [Concomitant]
     Active Substance: ATORVASTATIN

REACTIONS (8)
  - Osteomyelitis [Unknown]
  - Product prescribing error [Unknown]
  - Thyroid disorder [Unknown]
  - Cough [Recovering/Resolving]
  - Acne cystic [Not Recovered/Not Resolved]
  - Hypertension [Not Recovered/Not Resolved]
  - Headache [Not Recovered/Not Resolved]
  - Bronchitis [Unknown]
